FAERS Safety Report 15126253 (Version 2)
Quarter: 2018Q3

REPORT INFORMATION
  Report Type: Report from Study
  Country: CA (occurrence: CA)
  Receive Date: 20180710
  Receipt Date: 20180810
  Transmission Date: 20181010
  Serious: Yes (Death, Hospitalization)
  Sender: FDA-Public Use
  Company Number: CA-JNJFOC-20180517859

PATIENT
  Age: 76 Year
  Sex: Male
  Weight: 82.55 kg

DRUGS (1)
  1. TREMFYA [Suspect]
     Active Substance: GUSELKUMAB
     Indication: PSORIASIS
     Route: 058
     Dates: start: 20171212, end: 20180705

REACTIONS (7)
  - Clostridium difficile infection [Unknown]
  - Hip fracture [Not Recovered/Not Resolved]
  - Psoriasis [Unknown]
  - Death [Fatal]
  - Fall [Not Recovered/Not Resolved]
  - Sepsis [Not Recovered/Not Resolved]
  - Staphylococcal infection [Not Recovered/Not Resolved]

NARRATIVE: CASE EVENT DATE: 201804
